FAERS Safety Report 5400981-3 (Version None)
Quarter: 2007Q3

REPORT INFORMATION
  Report Type: 
  Country: None (occurrence: None)
  Receive Date: 20070730
  Receipt Date: 20070720
  Transmission Date: 20080115
  Serious: Yes (Hospitalization)
  Sender: FDA-Public Use
  Company Number: US-MERCK-0707USA03458

PATIENT
  Age: 54 Year
  Sex: Female

DRUGS (8)
  1. FOSAMAX PLUS D [Suspect]
     Indication: OSTEOPOROSIS
     Route: 048
     Dates: start: 20070713, end: 20070713
  2. METFORMIN [Concomitant]
     Route: 065
  3. LISINOPRIL [Concomitant]
     Route: 065
  4. PREDNISONE [Concomitant]
     Route: 065
  5. COUMADIN [Concomitant]
     Route: 065
  6. ZOLOFT [Concomitant]
     Route: 065
  7. LASIX [Concomitant]
     Route: 065
  8. INSULIN [Concomitant]
     Route: 065

REACTIONS (5)
  - CHEST PAIN [None]
  - HEADACHE [None]
  - INFLUENZA LIKE ILLNESS [None]
  - RASH MACULAR [None]
  - SENSATION OF HEAVINESS [None]
